APPROVED DRUG PRODUCT: ALPRAZOLAM
Active Ingredient: ALPRAZOLAM
Strength: 1MG
Dosage Form/Route: TABLET;ORAL
Application: A074215 | Product #003
Applicant: MYLAN PHARMACEUTICALS INC
Approved: Jan 27, 1994 | RLD: No | RS: No | Type: DISCN